FAERS Safety Report 23307196 (Version 2)
Quarter: 2024Q1

REPORT INFORMATION
  Report Type: Report from Study
  Country: TH (occurrence: TH)
  Receive Date: 20231218
  Receipt Date: 20240109
  Transmission Date: 20240410
  Serious: Yes (Other)
  Sender: FDA-Public Use
  Company Number: TH-ORGANON-O2312THA001238

PATIENT
  Age: 21 Year
  Sex: Female

DRUGS (1)
  1. NEXPLANON [Suspect]
     Active Substance: ETONOGESTREL
     Dosage: 1 IMPLANT
     Route: 059

REACTIONS (8)
  - Device dislocation [Recovered/Resolved]
  - Implant site pain [Recovered/Resolved]
  - Vaginal haemorrhage [Unknown]
  - Implant site hyperaesthesia [Recovered/Resolved]
  - Implant site paraesthesia [Recovered/Resolved]
  - Implant site hypoaesthesia [Recovered/Resolved]
  - Complication associated with device [Recovered/Resolved]
  - Complication of device removal [Recovered/Resolved]
